FAERS Safety Report 13929445 (Version 1)
Quarter: 2017Q3

REPORT INFORMATION
  Report Type: Spontaneous
  Country: US (occurrence: US)
  Receive Date: 20170901
  Receipt Date: 20170901
  Transmission Date: 20171127
  Serious: Yes (Death)
  Sender: FDA-Public Use
  Company Number: None

PATIENT
  Sex: Female
  Weight: 63 kg

DRUGS (1)
  1. KEYTRUDA [Suspect]
     Active Substance: PEMBROLIZUMAB
     Indication: LUNG NEOPLASM MALIGNANT
     Dates: start: 20170115, end: 20170725

REACTIONS (6)
  - Atrial flutter [None]
  - Oedema peripheral [None]
  - Gait disturbance [None]
  - Pericardial excision [None]
  - Hypotension [None]
  - Septic shock [None]

NARRATIVE: CASE EVENT DATE: 20170810
